FAERS Safety Report 11861775 (Version 1)
Quarter: 2015Q4

REPORT INFORMATION
  Report Type: Spontaneous
  Country: US (occurrence: None)
  Receive Date: 20151222
  Receipt Date: 20151222
  Transmission Date: 20160305
  Serious: No
  Sender: FDA-Public Use
  Company Number: None

PATIENT
  Age: 61 Year
  Sex: Female
  Weight: 95 kg

DRUGS (1)
  1. TISSEEL [Suspect]
     Active Substance: FIBRINOGEN HUMAN\THROMBIN HUMAN
     Indication: LAPAROSCOPIC SURGERY
     Route: 061
     Dates: start: 20151123

REACTIONS (1)
  - Product quality issue [None]

NARRATIVE: CASE EVENT DATE: 20151123
